FAERS Safety Report 8104890-0 (Version None)
Quarter: 2012Q1

REPORT INFORMATION
  Report Type: 
  Country: None (occurrence: None)
  Receive Date: 20120201
  Receipt Date: 20120130
  Transmission Date: 20120608
  Serious: Yes (Death, Other)
  Sender: FDA-Public Use
  Company Number: US-GLAXOSMITHKLINE-A0924818A

PATIENT
  Age: 81 Year
  Sex: Male

DRUGS (3)
  1. PROCRIT [Concomitant]
  2. TRANSFUSION [Concomitant]
  3. PROMACTA [Suspect]
     Indication: REFRACTORY CYTOPENIA WITH MULTILINEAGE DYSPLASIA
     Dates: start: 20101101

REACTIONS (7)
  - SMALL INTESTINE CARCINOMA [None]
  - ASPARTATE AMINOTRANSFERASE INCREASED [None]
  - BLOOD BILIRUBIN INCREASED [None]
  - BLOOD ALKALINE PHOSPHATASE INCREASED [None]
  - ALANINE AMINOTRANSFERASE INCREASED [None]
  - REFRACTORY ANAEMIA WITH AN EXCESS OF BLASTS [None]
  - MYELODYSPLASTIC SYNDROME [None]
